FAERS Safety Report 4393695-2 (Version None)
Quarter: 2004Q3

REPORT INFORMATION
  Report Type: 
  Country: None (occurrence: None)
  Receive Date: 20040709
  Receipt Date: 20040604
  Transmission Date: 20050211
  Serious: Yes (Other)
  Sender: FDA-Public Use
  Company Number: PHEH2004US06217

PATIENT
  Age: 48 Year
  Sex: Female
  Weight: 66 kg

DRUGS (6)
  1. ZOMETA [Suspect]
     Indication: THYROID CANCER METASTATIC
     Dosage: 4 MG MONTHLY
     Route: 042
     Dates: start: 20040220, end: 20040524
  2. SYNTHROID [Concomitant]
     Indication: PROPHYLAXIS
     Dosage: 250 MG, QD
     Route: 048
     Dates: start: 20040329
  3. NEURONTIN [Concomitant]
     Indication: NEUROPATHIC PAIN
     Dosage: 300 MG, QD
     Route: 048
     Dates: start: 20040202
  4. ADVAIR DISKUS 100/50 [Concomitant]
     Indication: ASTHMA
  5. MAXZIDE [Concomitant]
     Indication: FLUID RETENTION
     Dosage: 25-37.5 MG QD
     Route: 048
     Dates: start: 20040220
  6. HIPPURAN I 131 [Concomitant]
     Indication: THYROID CANCER METASTATIC
     Dates: start: 20040329, end: 20040329

REACTIONS (4)
  - DERMATITIS [None]
  - LEUKOCYTOCLASTIC VASCULITIS [None]
  - RASH [None]
  - TYPE III IMMUNE COMPLEX MEDIATED REACTION [None]
